FAERS Safety Report 9287373 (Version 1)
Quarter: 2013Q2

REPORT INFORMATION
  Report Type: Report from Study
  Country: US (occurrence: US)
  Receive Date: 20130514
  Receipt Date: 20130514
  Transmission Date: 20140414
  Serious: Yes (Other)
  Sender: FDA-Public Use
  Company Number: US-ROCHE-1222726

PATIENT
  Age: 71 Year
  Sex: Male
  Weight: 94.43 kg

DRUGS (3)
  1. LUCENTIS [Suspect]
     Indication: AGE-RELATED MACULAR DEGENERATION
     Dosage: 4-5 SHOTS
     Route: 050
     Dates: end: 201301
  2. ATROPINE SULFATE 1% [Concomitant]
     Indication: AGE-RELATED MACULAR DEGENERATION
     Route: 047
  3. PRED FORTE [Concomitant]
     Indication: AGE-RELATED MACULAR DEGENERATION
     Route: 047

REACTIONS (5)
  - Hypersensitivity [Not Recovered/Not Resolved]
  - Eye infection staphylococcal [Recovered/Resolved]
  - Pain [Unknown]
  - Weight decreased [Unknown]
  - Photophobia [Unknown]
